FAERS Safety Report 13426490 (Version 2)
Quarter: 2017Q3

REPORT INFORMATION
  Report Type: Report from Study
  Country: BR (occurrence: BR)
  Receive Date: 20170411
  Receipt Date: 20170906
  Transmission Date: 20171127
  Serious: Yes (Other)
  Sender: FDA-Public Use
  Company Number: PHHY2015BR032186

PATIENT
  Age: 60 Year
  Sex: Male
  Weight: 84 kg

DRUGS (3)
  1. SANDOSTATIN LAR DEPOT [Suspect]
     Active Substance: OCTREOTIDE ACETATE
     Indication: ACROMEGALY
     Dosage: 2 DF QMO
     Route: 030
     Dates: start: 2010, end: 201503
  2. CABERGOLINA [Concomitant]
     Active Substance: CABERGOLINE
     Indication: PRODUCT USED FOR UNKNOWN INDICATION
     Route: 065
  3. SANDOSTATIN LAR DEPOT [Suspect]
     Active Substance: OCTREOTIDE ACETATE
     Indication: PITUITARY TUMOUR
     Dosage: 40 MG, QMO (ONCE A MONTH)
     Route: 030

REACTIONS (12)
  - Gait disturbance [Unknown]
  - Product quality issue [Unknown]
  - Pain [Unknown]
  - Pituitary tumour [Unknown]
  - Aphonia [Unknown]
  - Drug ineffective [Unknown]
  - Thyroid neoplasm [Unknown]
  - Epistaxis [Recovering/Resolving]
  - Injection site pain [Unknown]
  - Osteoporosis [Unknown]
  - Needle issue [Unknown]
  - Weight decreased [Recovering/Resolving]

NARRATIVE: CASE EVENT DATE: 20150306
